FAERS Safety Report 8402010 (Version 2)
Quarter: 2013Q2

REPORT INFORMATION
  Report Type: Spontaneous
  Country: US (occurrence: None)
  Receive Date: 20111227
  Receipt Date: 20120426
  Transmission Date: 20140414
  Serious: No
  Sender: FDA-Public Use
  Company Number: PHEH2011US009437

PATIENT
  Age: 49 Year
  Sex: Female

DRUGS (6)
  1. GILENYA [Suspect]
     Indication: MULTIPLE SCLEROSIS
     Dosage: 0.5 MG, QD, ORAL
     Route: 048
     Dates: start: 20110711
  2. METOPROLOL (METOPROLOL) [Concomitant]
  3. ENLAPRIL (ENLAPRIL) [Concomitant]
  4. PREVACID (LANSOPRAZOLE) [Concomitant]
  5. TEGRETOL (CARBAMAZEPINE) [Concomitant]
  6. LIPITOR (ATORVASTATIN) [Concomitant]

REACTIONS (2)
  - FLUSHING [None]
  - HEADACHE [None]
